FAERS Safety Report 7750170-2 (Version None)
Quarter: 2011Q3

REPORT INFORMATION
  Report Type: 
  Country: None (occurrence: None)
  Receive Date: 20110914
  Receipt Date: 20110914
  Transmission Date: 20111222
  Serious: Yes (Other)
  Sender: FDA-Public Use
  Company Number: None

PATIENT
  Age: 60 Year
  Sex: Male
  Weight: 102.05 kg

DRUGS (1)
  1. APLISOL [Suspect]
     Indication: MYCOBACTERIUM TUBERCULOSIS COMPLEX TEST
     Dosage: 0.1ML

REACTIONS (5)
  - REACTION TO DRUG EXCIPIENTS [None]
  - DRUG HYPERSENSITIVITY [None]
  - URTICARIA [None]
  - RASH [None]
  - PRURITUS [None]
